FAERS Safety Report 24127334 (Version 2)
Quarter: 2024Q3

REPORT INFORMATION
  Report Type: Spontaneous
  Country: DE (occurrence: DE)
  Receive Date: 20240723
  Receipt Date: 20240808
  Transmission Date: 20241016
  Serious: Yes (Other)
  Sender: SANDOZ
  Company Number: DE-002147023-NVSC2024DE144336

PATIENT
  Sex: Female
  Weight: 58 kg

DRUGS (8)
  1. FULVESTRANT [Suspect]
     Active Substance: FULVESTRANT
     Dosage: 2.5 MG, QD, (DAILY DOSE)
     Route: 048
     Dates: start: 20230824
  2. FULVESTRANT [Suspect]
     Active Substance: FULVESTRANT
     Indication: Hormone receptor positive HER2 negative breast cancer
     Dosage: 500 MG, Q2W, (DAILY DOSE)
     Route: 030
     Dates: start: 20191219, end: 20200115
  3. FULVESTRANT [Suspect]
     Active Substance: FULVESTRANT
     Dosage: 500 MG, Q2W, (DAILY DOSE)
     Route: 030
     Dates: start: 20200116, end: 20230727
  4. RIBOCICLIB [Suspect]
     Active Substance: RIBOCICLIB
     Dosage: 400 MG, QD,(DAILY DOSE, SCHEMA 21 DAYS INTAKE/ 7 DAYS PAUSE)
     Route: 048
     Dates: start: 20200316, end: 20230823
  5. RIBOCICLIB [Suspect]
     Active Substance: RIBOCICLIB
     Dosage: 400 MG, QD,(DAILY DOSE, SCHEMA 21 DAYS INTAKE/ 7 DAYS PAUSE)
     Route: 048
     Dates: start: 20230824
  6. RIBOCICLIB [Suspect]
     Active Substance: RIBOCICLIB
     Indication: Hormone receptor positive HER2 negative breast cancer
     Dosage: 600 MG, QD, (DAILY DOSE, SCHEMA 21 DAYS INTAKE/ 7 DAYS PAUSE)
     Route: 048
     Dates: start: 20191220, end: 20200116
  7. RIBOCICLIB [Suspect]
     Active Substance: RIBOCICLIB
     Dosage: 600 MG, QD, (DAILY DOSE, SCHEMA 21 DAYS INTAKE/ 7 DAYS PAUSE)
     Route: 048
     Dates: start: 20200117, end: 20200203
  8. LETROZOLE [Concomitant]
     Active Substance: LETROZOLE
     Indication: Hormone receptor positive HER2 negative breast cancer
     Dosage: 2.5 MG, QD, (DAILY USE)
     Route: 048
     Dates: start: 20230824

REACTIONS (1)
  - Hypertension [Recovered/Resolved]

NARRATIVE: CASE EVENT DATE: 20230406
